FAERS Safety Report 18591433 (Version 3)
Quarter: 2021Q4

REPORT INFORMATION
  Report Type: Other
  Country: SG (occurrence: None)
  Receive Date: 20201208
  Receipt Date: 20211227
  Transmission Date: 20220303
  Serious: Yes (Hospitalization, Other)
  Sender: FDA-Public Use
  Company Number: SG-ROCHE-2723319

PATIENT
  Age: 65 Year
  Sex: Female

DRUGS (1)
  1. KADCYLA [Suspect]
     Active Substance: ADO-TRASTUZUMAB EMTANSINE
     Indication: Breast cancer metastatic
     Route: 065

REACTIONS (11)
  - Gastric infection [Unknown]
  - Red blood cell count decreased [Recovered/Resolved]
  - Illness [Unknown]
  - Platelet count decreased [Unknown]
  - Gastric haemorrhage [Unknown]
  - Gastrointestinal injury [Unknown]
  - Haemoptysis [Unknown]
  - Drug hypersensitivity [Unknown]
  - Vasodilatation [Unknown]
  - Internal haemorrhage [Unknown]
  - Haematemesis [Unknown]
